FAERS Safety Report 8822578 (Version 2)
Quarter: 2012Q4

REPORT INFORMATION
  Report Type: 
  Country: DK (occurrence: DK)
  Receive Date: 20121003
  Receipt Date: 20121220
  Transmission Date: 20130627
  Serious: Yes (Hospitalization, Other)
  Sender: FDA-Public Use
  Company Number: DK-ELI_LILLY_AND_COMPANY-DK201209007572

PATIENT
  Age: 34 Year
  Sex: Male
  Weight: 78 kg

DRUGS (2)
  1. CIALIS [Suspect]
     Indication: ERECTILE DYSFUNCTION
     Dosage: 10 mg, qd
     Route: 048
     Dates: start: 20120919, end: 20120921
  2. OLANZAPINE [Concomitant]
     Indication: PSYCHOTIC DISORDER
     Dosage: 1 DF, unknown
     Dates: start: 201101

REACTIONS (2)
  - Psychotic disorder [Recovered/Resolved]
  - Drug abuse [Unknown]
